FAERS Safety Report 9019045 (Version 1)
Quarter: 2013Q1

REPORT INFORMATION
  Report Type: Spontaneous
  Country: MT (occurrence: MT)
  Receive Date: 20130118
  Receipt Date: 20130118
  Transmission Date: 20140127
  Serious: Yes (Hospitalization, Other)
  Sender: FDA-Public Use
  Company Number: MT-JNJFOC-20130107331

PATIENT
  Age: 22 Year
  Sex: Female

DRUGS (2)
  1. TOPAMAX [Suspect]
     Indication: MIGRAINE
     Dosage: FOR 6 DAYS
     Route: 048
  2. TOPAMAX [Suspect]
     Indication: MIGRAINE
     Route: 048

REACTIONS (2)
  - Maculopathy [Recovered/Resolved]
  - Drug ineffective [Unknown]
